FAERS Safety Report 23241865 (Version 1)
Quarter: 2023Q4

REPORT INFORMATION
  Report Type: Spontaneous
  Country: TN (occurrence: TN)
  Receive Date: 20231129
  Receipt Date: 20231129
  Transmission Date: 20240110
  Serious: Yes (Other)
  Sender: FDA-Public Use
  Company Number: TN-MYLANLABS-2023M1125251

PATIENT
  Age: 39 Year
  Sex: Male

DRUGS (18)
  1. VENLAFAXINE [Suspect]
     Active Substance: VENLAFAXINE HYDROCHLORIDE
     Indication: Social anxiety disorder
     Dosage: UNK
     Route: 065
  2. VENLAFAXINE [Suspect]
     Active Substance: VENLAFAXINE HYDROCHLORIDE
     Indication: Agoraphobia
  3. ESCITALOPRAM [Suspect]
     Active Substance: ESCITALOPRAM OXALATE
     Indication: Social anxiety disorder
     Dosage: UNK
     Route: 065
  4. ESCITALOPRAM [Suspect]
     Active Substance: ESCITALOPRAM OXALATE
     Indication: Agoraphobia
  5. AMITRIPTYLINE [Suspect]
     Active Substance: AMITRIPTYLINE
     Indication: Social anxiety disorder
     Dosage: UNK
     Route: 065
  6. AMITRIPTYLINE [Suspect]
     Active Substance: AMITRIPTYLINE
     Indication: Agoraphobia
  7. BROMAZEPAM [Suspect]
     Active Substance: BROMAZEPAM
     Indication: Social anxiety disorder
     Dosage: UNK
     Route: 065
  8. BROMAZEPAM [Suspect]
     Active Substance: BROMAZEPAM
     Indication: Agoraphobia
  9. PAROXETINE [Suspect]
     Active Substance: PAROXETINE
     Indication: Social anxiety disorder
     Dosage: UNK
     Route: 065
  10. PAROXETINE [Suspect]
     Active Substance: PAROXETINE
     Indication: Agoraphobia
  11. PRAZEPAM [Suspect]
     Active Substance: PRAZEPAM
     Indication: Social anxiety disorder
     Dosage: UNK
     Route: 065
  12. PRAZEPAM [Suspect]
     Active Substance: PRAZEPAM
     Indication: Agoraphobia
  13. Immunoglobulin [Concomitant]
     Indication: Stiff person syndrome
     Dosage: UNK (2 INFUSIONS (0.4 G/KG/D DURING 5 DAYS EACH) AT 2 MONTHS INTERVAL)
     Route: 065
  14. BACLOFEN [Concomitant]
     Active Substance: BACLOFEN
     Indication: Stiff person syndrome
     Dosage: 15 MILLIGRAM, QD
     Route: 065
  15. CLOBAZAM [Concomitant]
     Active Substance: CLOBAZAM
     Indication: Stiff person syndrome
     Dosage: 20 MILLIGRAM, QD
     Route: 065
  16. PREGABALIN [Concomitant]
     Active Substance: PREGABALIN
     Indication: Stiff person syndrome
     Dosage: 375 MILLIGRAM, QD
     Route: 065
  17. PREGABALIN [Concomitant]
     Active Substance: PREGABALIN
     Dosage: 450 MILLIGRAM, QD
     Route: 065
  18. CLONAZEPAM [Concomitant]
     Active Substance: CLONAZEPAM
     Indication: Stiff person syndrome
     Dosage: 6 MILLIGRAM, QD
     Route: 065

REACTIONS (1)
  - Drug ineffective [Unknown]
